FAERS Safety Report 8353818-7 (Version None)
Quarter: 2012Q2

REPORT INFORMATION
  Report Type: 
  Country: None (occurrence: None)
  Receive Date: 20120511
  Receipt Date: 20111207
  Transmission Date: 20120825
  Serious: No
  Sender: FDA-Public Use
  Company Number: US-GLAXOSMITHKLINE-A0957807A

PATIENT
  Sex: Female

DRUGS (6)
  1. TYKERB [Suspect]
     Indication: PRODUCT USED FOR UNKNOWN INDICATION
     Dosage: 1250MG PER DAY
     Route: 048
  2. VITAMIN B-12 [Concomitant]
  3. XELODA [Concomitant]
  4. LUPRON DEPOT [Concomitant]
  5. METOPROLOL TARTRATE [Concomitant]
  6. HERCEPTIN [Concomitant]

REACTIONS (6)
  - NAIL DISORDER [None]
  - SKIN CHAPPED [None]
  - SKIN EXFOLIATION [None]
  - DYSGEUSIA [None]
  - DECREASED APPETITE [None]
  - BONE PAIN [None]
